FAERS Safety Report 18694066 (Version 1)
Quarter: 2021Q1

REPORT INFORMATION
  Report Type: Report from Study
  Country: BR (occurrence: BR)
  Receive Date: 20210104
  Receipt Date: 20210104
  Transmission Date: 20210419
  Serious: Yes (Other)
  Sender: FDA-Public Use
  Company Number: NVSC2020BR345941

PATIENT
  Age: 72 Year
  Sex: Female

DRUGS (1)
  1. COSENTYX [Suspect]
     Active Substance: SECUKINUMAB
     Indication: PSORIASIS
     Dosage: 300 MG, UNKNOWN
     Route: 065
     Dates: start: 202008, end: 202008

REACTIONS (8)
  - Dry skin [Recovering/Resolving]
  - Peripheral swelling [Recovered/Resolved]
  - Arthropathy [Recovering/Resolving]
  - Skin disorder [Recovering/Resolving]
  - Skin laceration [Recovered/Resolved]
  - Eye swelling [Recovering/Resolving]
  - Erysipelas [Recovered/Resolved]
  - Eye allergy [Recovering/Resolving]

NARRATIVE: CASE EVENT DATE: 202012
